FAERS Safety Report 5736933-3 (Version None)
Quarter: 2008Q2

REPORT INFORMATION
  Report Type: 
  Country: None (occurrence: None)
  Receive Date: 20080509
  Receipt Date: 20080501
  Transmission Date: 20081010
  Serious: Yes (Death)
  Sender: FDA-Public Use
  Company Number: 2008AL003291

PATIENT
  Age: 28 Year
  Sex: Female

DRUGS (3)
  1. DIAZEPAM [Suspect]
  2. AMITRIPTYLINE HCL [Concomitant]
  3. DIAMORPHINE [Concomitant]

REACTIONS (1)
  - SELF-MEDICATION [None]
